FAERS Safety Report 14204063 (Version 4)
Quarter: 2017Q4

REPORT INFORMATION
  Report Type: Report from Study
  Country: DE (occurrence: DE)
  Receive Date: 20171120
  Receipt Date: 20171223
  Transmission Date: 20180321
  Serious: Yes (Death, Hospitalization, Disabling)
  Sender: FDA-Public Use
  Company Number: PHHY2017DE164972

PATIENT
  Age: 86 Year
  Sex: Male
  Weight: 67 kg

DRUGS (3)
  1. ENTRESTO [Suspect]
     Active Substance: SACUBITRIL\VALSARTAN
     Dosage: 1 DF (24/26  MG), BID
     Route: 048
  2. AMIODARONE [Concomitant]
     Active Substance: AMIODARONE
     Indication: PRODUCT USED FOR UNKNOWN INDICATION
     Route: 065
  3. ENTRESTO [Suspect]
     Active Substance: SACUBITRIL\VALSARTAN
     Indication: CARDIAC FAILURE CHRONIC
     Dosage: 1 DF (49/51 MG), BID
     Route: 048
     Dates: start: 20170516, end: 20171130

REACTIONS (7)
  - Pleural effusion [Fatal]
  - Cardiac failure [Fatal]
  - Renal failure [Fatal]
  - Dyspnoea [Fatal]
  - Oedema [Fatal]
  - Renal impairment [Fatal]
  - Hepatic enzyme increased [Fatal]

NARRATIVE: CASE EVENT DATE: 20171027
